FAERS Safety Report 11211691 (Version 2)
Quarter: 2015Q3

REPORT INFORMATION
  Report Type: Report from Study
  Country: US (occurrence: US)
  Receive Date: 20150623
  Receipt Date: 20150729
  Transmission Date: 20151125
  Serious: Yes (Hospitalization)
  Sender: FDA-Public Use
  Company Number: US-BIOGENIDEC-2015BI082910

PATIENT
  Age: 64 Year
  Sex: Female

DRUGS (2)
  1. AVONEX [Suspect]
     Active Substance: INTERFERON BETA-1A
     Indication: MULTIPLE SCLEROSIS
     Route: 030
  2. AVONEX [Suspect]
     Active Substance: INTERFERON BETA-1A
     Indication: MULTIPLE SCLEROSIS
     Route: 030
     Dates: start: 19981227, end: 20080820

REACTIONS (5)
  - Hypertension [Unknown]
  - Blood disorder [Unknown]
  - Cerebrovascular accident [Recovered/Resolved]
  - General symptom [Not Recovered/Not Resolved]
  - Multiple sclerosis relapse [Recovered/Resolved]

NARRATIVE: CASE EVENT DATE: 2012
